FAERS Safety Report 5136042-0 (Version None)
Quarter: 2006Q4

REPORT INFORMATION
  Report Type: 
  Country: None (occurrence: None)
  Receive Date: 20061020
  Receipt Date: 20061006
  Transmission Date: 20070319
  Serious: Yes (Other)
  Sender: FDA-Public Use
  Company Number: 2006BL005882

PATIENT
  Age: 64 Year
  Sex: Female

DRUGS (1)
  1. PREDNISOLONE SODIUM PHOSPHATE [Suspect]
     Indication: POST VIRAL FATIGUE SYNDROME
     Dosage: 10 MILLIGRAMS;ONCE A DAY; ORAL
     Route: 048
     Dates: start: 20020101, end: 20060201

REACTIONS (3)
  - CATARACT [None]
  - GLAUCOMA [None]
  - SELF-MEDICATION [None]
